FAERS Safety Report 11788217 (Version 1)
Quarter: 2015Q4

REPORT INFORMATION
  Report Type: Spontaneous
  Country: US (occurrence: US)
  Receive Date: 20151201
  Receipt Date: 20151201
  Transmission Date: 20160305
  Serious: Yes (Death)
  Sender: FDA-Public Use
  Company Number: US-HOSPIRA-2953111

PATIENT
  Age: 67 Year
  Sex: Male

DRUGS (1)
  1. NIPENT [Suspect]
     Active Substance: PENTOSTATIN
     Indication: PRODUCT USED FOR UNKNOWN INDICATION
     Dates: start: 20150209, end: 20150622

REACTIONS (1)
  - Death [Fatal]
